FAERS Safety Report 12142070 (Version 2)
Quarter: 2016Q1

REPORT INFORMATION
  Report Type: Spontaneous
  Country: US (occurrence: US)
  Receive Date: 20160303
  Receipt Date: 20160310
  Transmission Date: 20160526
  Serious: No
  Sender: FDA-Public Use
  Company Number: US-GILEAD-2016-0201472

PATIENT
  Age: 92 Year
  Sex: Male

DRUGS (1)
  1. RANEXA [Suspect]
     Active Substance: RANOLAZINE
     Indication: PRODUCT USED FOR UNKNOWN INDICATION
     Dosage: UNK
     Route: 065
     Dates: start: 201511

REACTIONS (4)
  - Blood urea increased [Recovered/Resolved]
  - Pain in jaw [Recovered/Resolved]
  - Blood test abnormal [Unknown]
  - Toothache [Recovered/Resolved]
